FAERS Safety Report 14946919 (Version 2)
Quarter: 2018Q2

REPORT INFORMATION
  Report Type: Report from Study
  Country: CA (occurrence: CA)
  Receive Date: 20180529
  Receipt Date: 20180618
  Transmission Date: 20180711
  Serious: Yes (Hospitalization)
  Sender: FDA-Public Use
  Company Number: CA-JNJFOC-20180533240

PATIENT
  Age: 14 Year
  Sex: Male
  Weight: 55.4 kg

DRUGS (1)
  1. REMICADE [Suspect]
     Active Substance: INFLIXIMAB
     Indication: COLITIS ULCERATIVE
     Dosage: STRENGTH = 100 MG
     Route: 042
     Dates: start: 20180415

REACTIONS (4)
  - Off label use [Unknown]
  - Colitis ulcerative [Not Recovered/Not Resolved]
  - General physical health deterioration [Unknown]
  - Product use issue [Unknown]

NARRATIVE: CASE EVENT DATE: 20180415
